FAERS Safety Report 4854947-2 (Version None)
Quarter: 2005Q4

REPORT INFORMATION
  Report Type: 
  Country: None (occurrence: None)
  Receive Date: 20051213
  Receipt Date: 20051205
  Transmission Date: 20060501
  Serious: Yes (Hospitalization)
  Sender: FDA-Public Use
  Company Number: LTI2005A00287

PATIENT
  Age: 63 Year
  Sex: Female

DRUGS (10)
  1. ACTOS [Suspect]
     Indication: DIABETES MELLITUS NON-INSULIN-DEPENDENT
     Dosage: 15 MG (15 MG, 15 MG, 1 IN 1 D); 30 MG (30 MG, 1 IN 1 D)
     Route: 048
     Dates: start: 20050613, end: 20050912
  2. ACTOS [Suspect]
     Indication: DIABETES MELLITUS NON-INSULIN-DEPENDENT
     Dosage: 15 MG (15 MG, 15 MG, 1 IN 1 D); 30 MG (30 MG, 1 IN 1 D)
     Route: 048
     Dates: start: 20050913, end: 20051017
  3. DEPAKENE [Suspect]
     Dosage: 1000 MG (500 MG,2 IN 1 D)
     Route: 048
     Dates: start: 20020101
  4. EFFEXOR [Concomitant]
  5. ALLOPURINOL [Concomitant]
  6. MONO-TILDIAM (DILTIAZEM HYDROCHLORIDE) [Concomitant]
  7. RENITEC (ENALAPRIL) [Concomitant]
  8. CRESTOR [Concomitant]
  9. AMLODIPINE BESYLATE [Concomitant]
  10. OMEPRAZOLE [Concomitant]

REACTIONS (7)
  - EXOPHTHALMOS [None]
  - EYELID OEDEMA [None]
  - GENERALISED OEDEMA [None]
  - MYOGLOBIN BLOOD INCREASED [None]
  - PULSE ABSENT [None]
  - RENAL FAILURE [None]
  - WEIGHT INCREASED [None]
